FAERS Safety Report 9316624 (Version 1)
Quarter: 2013Q2

REPORT INFORMATION
  Report Type: Report from Study
  Country: US (occurrence: US)
  Receive Date: 20130530
  Receipt Date: 20130530
  Transmission Date: 20140414
  Serious: Yes (Hospitalization)
  Sender: FDA-Public Use
  Company Number: US-ROCHE-1227700

PATIENT
  Sex: Female

DRUGS (2)
  1. KADCYLA [Suspect]
     Indication: BREAST CANCER METASTATIC
     Route: 042
     Dates: start: 20130509
  2. VANCOMYCIN [Concomitant]
     Indication: SKIN REACTION
     Route: 042
     Dates: start: 20130517

REACTIONS (3)
  - Rash pustular [Recovering/Resolving]
  - Breast pain [Recovering/Resolving]
  - Device leakage [Unknown]
